FAERS Safety Report 13246568 (Version 2)
Quarter: 2019Q4

REPORT INFORMATION
  Report Type: Spontaneous
  Country: DE (occurrence: DE)
  Receive Date: 20170217
  Receipt Date: 20191216
  Transmission Date: 20200122
  Serious: Yes (Other)
  Sender: FDA-Public Use
  Company Number: DE-TEVA-738551GER

PATIENT
  Age: 34 Year
  Sex: Female
  Weight: 84.6 kg

DRUGS (6)
  1. LAMOTRIGIN DURA [Suspect]
     Active Substance: LAMOTRIGINE
     Dosage: 250 MILLIGRAM DAILY; 300 [MG/D ]/ FIRST 125-0-125 MG/D, THAN 150-0-150 MG/D
     Route: 048
     Dates: start: 20151007, end: 20160712
  2. LAMOTRIGIN DURA [Suspect]
     Active Substance: LAMOTRIGINE
     Indication: SCHIZOAFFECTIVE DISORDER
     Dosage: 300 MILLIGRAM DAILY; 300 [MG/D ]/ FIRST 125-0-125 MG/D, THAN 150-0-150 MG/D
     Route: 048
     Dates: start: 20151007, end: 20160712
  3. FEMIBION [Concomitant]
     Indication: PROPHYLAXIS OF NEURAL TUBE DEFECT
     Route: 048
     Dates: start: 20151007, end: 20160712
  4. MISOPROSTOL. [Concomitant]
     Active Substance: MISOPROSTOL
     Indication: LABOUR INDUCTION
     Route: 048
     Dates: start: 20160712, end: 20160712
  5. INSULIN BASAL [Concomitant]
     Active Substance: INSULIN NOS
     Indication: GESTATIONAL DIABETES
     Dosage: 11 [I.E./D ]/ ACCORDING TO BLOOD GLUCOSE LEVEL 5-11 IE/D
     Route: 058
  6. QUETIAPINE. [Suspect]
     Active Substance: QUETIAPINE
     Indication: SCHIZOAFFECTIVE DISORDER
     Dosage: 400 MILLIGRAM DAILY;
     Route: 048
     Dates: start: 20151007, end: 20160712

REACTIONS (2)
  - Maternal exposure during pregnancy [Unknown]
  - Gestational diabetes [Recovered/Resolved]
